FAERS Safety Report 10009893 (Version 1)
Quarter: 2014Q1

REPORT INFORMATION
  Report Type: Spontaneous
  Country: US (occurrence: US)
  Receive Date: 20140312
  Receipt Date: 20140312
  Transmission Date: 20141002
  Serious: No
  Sender: FDA-Public Use
  Company Number: US-INCYTE CORPORATION-2013IN000680

PATIENT
  Sex: Male

DRUGS (9)
  1. JAKAFI [Suspect]
     Indication: POLYCYTHAEMIA VERA
     Dosage: 10 MG, BID
     Dates: start: 2013
  2. METOPROLOL [Concomitant]
  3. REQUIP [Concomitant]
  4. CRESTOR [Concomitant]
  5. ASPIRIN [Concomitant]
     Dosage: 81 MG
  6. ALLOPURINOL [Concomitant]
  7. SYNTHROID [Concomitant]
  8. AMANTADINE [Concomitant]
  9. OMEPRAZOLE [Concomitant]

REACTIONS (1)
  - Local swelling [Unknown]
